FAERS Safety Report 25446779 (Version 2)
Quarter: 2025Q3

REPORT INFORMATION
  Report Type: Spontaneous
  Country: JP (occurrence: JP)
  Receive Date: 20250617
  Receipt Date: 20250701
  Transmission Date: 20251020
  Serious: No
  Sender: PFIZER
  Company Number: JP-PFIZER INC-PV202500071054

PATIENT
  Age: 13 Year

DRUGS (1)
  1. NGENLA [Suspect]
     Active Substance: SOMATROGON-GHLA
     Indication: Growth hormone deficiency
     Route: 058
     Dates: start: 202307, end: 202501

REACTIONS (1)
  - Injection site pain [Not Recovered/Not Resolved]

NARRATIVE: CASE EVENT DATE: 20230701
